FAERS Safety Report 5818357-3 (Version None)
Quarter: 2008Q3

REPORT INFORMATION
  Report Type: 
  Country: None (occurrence: None)
  Receive Date: 20080716
  Receipt Date: 20080702
  Transmission Date: 20090109
  Serious: Yes (Other)
  Sender: FDA-Public Use
  Company Number: 2008CH004206

PATIENT
  Age: 61 Year
  Sex: Female

DRUGS (1)
  1. ALOXI [Suspect]
     Indication: PROPHYLAXIS OF NAUSEA AND VOMITING
     Dosage: 0.25 MG, SINGLE, IV DRIP
     Route: 041

REACTIONS (2)
  - CONVULSION [None]
  - SYNCOPE [None]
